FAERS Safety Report 16166919 (Version 2)
Quarter: 2019Q3

REPORT INFORMATION
  Report Type: Report from Study
  Country: FR (occurrence: FR)
  Receive Date: 20190408
  Receipt Date: 20190710
  Transmission Date: 20191004
  Serious: Yes (Hospitalization)
  Sender: FDA-Public Use
  Company Number: FR-ROCHE-2297890

PATIENT
  Age: 27 Year
  Sex: Female
  Weight: 54.5 kg

DRUGS (1)
  1. VEMURAFENIB. [Suspect]
     Active Substance: VEMURAFENIB
     Indication: NEOPLASM MALIGNANT
     Dosage: CUMULATIVE DOSE, SINCE THE FIRST ADMINISTRATION WAS 15360 MG?ON 02/APR/2019, RECENT DOSE OF VEMURAFE
     Route: 048
     Dates: start: 20190326

REACTIONS (1)
  - Rash pruritic [Recovered/Resolved]

NARRATIVE: CASE EVENT DATE: 20190402
